FAERS Safety Report 15223562 (Version 2)
Quarter: 2019Q3

REPORT INFORMATION
  Report Type: Spontaneous
  Country: AU (occurrence: AU)
  Receive Date: 20180731
  Receipt Date: 20190930
  Transmission Date: 20191004
  Serious: Yes (Other)
  Sender: FDA-Public Use
  Company Number: AU-GLAXOSMITHKLINE-AU2018135716

PATIENT
  Age: 76 Year
  Sex: Female

DRUGS (1)
  1. FLUTICASONE PROPIONATE. [Suspect]
     Active Substance: FLUTICASONE PROPIONATE
     Indication: BRONCHIECTASIS
     Dosage: INHALED CORTICOSTEROID
     Route: 055

REACTIONS (2)
  - Hyponatraemia [Recovered/Resolved]
  - Adrenal insufficiency [Recovered/Resolved]
